FAERS Safety Report 13131070 (Version 1)
Quarter: 2017Q1

REPORT INFORMATION
  Report Type: Spontaneous
  Country: AU (occurrence: AU)
  Receive Date: 20170119
  Receipt Date: 20170119
  Transmission Date: 20170428
  Serious: Yes (Hospitalization)
  Sender: FDA-Public Use
  Company Number: AU-HTU-2017AU012864

PATIENT
  Age: 72 Year
  Sex: Female

DRUGS (5)
  1. FLUOROURACIL. [Suspect]
     Active Substance: FLUOROURACIL
     Dosage: 4500 MG, UNK
     Route: 042
     Dates: start: 20161004
  2. OXALIPLATIN. [Suspect]
     Active Substance: OXALIPLATIN
     Dosage: UNK
     Route: 042
     Dates: start: 20161004
  3. PALONOSETRON HCL BRAND UNKNOWN [Suspect]
     Active Substance: PALONOSETRON HYDROCHLORIDE
     Indication: PROPHYLAXIS OF NAUSEA AND VOMITING
     Dosage: 0.25 MG, UNK
     Route: 042
     Dates: start: 20161004
  4. DEXAMETHASONE. [Suspect]
     Active Substance: DEXAMETHASONE
     Dosage: 8 MG, UNK
     Route: 042
     Dates: start: 20161004
  5. GLUCOSE [Suspect]
     Active Substance: DEXTROSE
     Dosage: 250 ML, UNK
     Route: 042
     Dates: start: 20161004

REACTIONS (6)
  - Joint stiffness [Unknown]
  - Ataxia [Unknown]
  - Glossitis [Unknown]
  - Joint lock [Unknown]
  - Muscle twitching [None]
  - Muscular weakness [Unknown]

NARRATIVE: CASE EVENT DATE: 20161031
